FAERS Safety Report 6306243-4 (Version None)
Quarter: 2009Q3

REPORT INFORMATION
  Report Type: 
  Country: None (occurrence: None)
  Receive Date: 20090812
  Receipt Date: 20090804
  Transmission Date: 20100115
  Serious: Yes (Hospitalization)
  Sender: FDA-Public Use
  Company Number: PT-ABBOTT-09P-130-0586128-00

PATIENT
  Age: 77 Year
  Sex: Male

DRUGS (4)
  1. WARFARIN [Suspect]
     Indication: CEREBROVASCULAR ACCIDENT
     Dosage: NOT REPORTED
  2. WARFARIN [Suspect]
     Indication: APHASIA
  3. WARFARIN [Suspect]
     Indication: ATRIAL FIBRILLATION
  4. WARFARIN [Suspect]
     Indication: CEREBRAL ISCHAEMIA

REACTIONS (1)
  - INTRA-ABDOMINAL HAEMATOMA [None]
